FAERS Safety Report 9473889 (Version 1)
Quarter: 2013Q3

REPORT INFORMATION
  Report Type: Spontaneous
  Country: US (occurrence: US)
  Receive Date: 20130823
  Receipt Date: 20130823
  Transmission Date: 20140515
  Serious: Yes (Other)
  Sender: FDA-Public Use
  Company Number: CHPA2013US013191

PATIENT
  Sex: Female

DRUGS (1)
  1. VOLTAREN GEL [Suspect]
     Indication: MUSCULOSKELETAL PAIN
     Dosage: UNK, UNK
     Route: 061

REACTIONS (4)
  - Urinary tract infection [Not Recovered/Not Resolved]
  - Drug administered at inappropriate site [Unknown]
  - Drug dispensed to wrong patient [Unknown]
  - Off label use [Unknown]
